FAERS Safety Report 6106770-9 (Version None)
Quarter: 2009Q1

REPORT INFORMATION
  Report Type: 
  Country: None (occurrence: None)
  Receive Date: 20090304
  Receipt Date: 20090217
  Transmission Date: 20090719
  Serious: Yes (Life-Threatening, Hospitalization)
  Sender: FDA-Public Use
  Company Number: WAES 0808CAN00084

PATIENT
  Age: 40 Year
  Sex: Male

DRUGS (5)
  1. ISENTRESS [Suspect]
     Indication: HIV INFECTION
     Dosage: 800 MG/DAILY PO
     Route: 048
     Dates: start: 20070215, end: 20070101
  2. TAB TMC-114 (DARUNAVIR) [Suspect]
     Indication: HIV INFECTION
     Dosage: 600 MG/BID PO
     Route: 048
     Dates: start: 20070215, end: 20070613
  3. RITONAVIR [Suspect]
     Dosage: 200 MG/DAILY PO
     Route: 048
     Dates: start: 20070215
  4. CORTICOSTEROIDS (UNSPECIFIED) [Suspect]
     Indication: RENAL FAILURE CHRONIC
  5. ABACAVIR SULFATE/LAMIVUDINE [Suspect]
     Indication: HIV INFECTION
     Dosage: PO
     Route: 048
     Dates: start: 20070215, end: 20070101

REACTIONS (3)
  - BLOOD PRESSURE INCREASED [None]
  - CONSTIPATION [None]
  - PANCREATITIS ACUTE [None]
